FAERS Safety Report 4925265-9 (Version None)
Quarter: 2006Q1

REPORT INFORMATION
  Report Type: 
  Country: None (occurrence: None)
  Receive Date: 20060223
  Receipt Date: 20060223
  Transmission Date: 20060701
  Serious: Yes (Hospitalization, Other)
  Sender: FDA-Public Use
  Company Number: None

PATIENT
  Sex: Female
  Weight: 87.58 kg

DRUGS (2)
  1. FLUOROURACIL [Suspect]
     Indication: NASOPHARYNGEAL CANCER
     Dosage: 7960 MG
     Dates: start: 20060123, end: 20060127
  2. CISPLATIN [Suspect]
     Dosage: 159 MG
     Dates: start: 20060123, end: 20060123

REACTIONS (22)
  - ALOPECIA [None]
  - DEHYDRATION [None]
  - DIHYDROPYRIMIDINE DEHYDROGENASE DEFICIENCY [None]
  - DYSPHAGIA [None]
  - ELECTROLYTE IMBALANCE [None]
  - FEBRILE NEUTROPENIA [None]
  - HYPERSENSITIVITY [None]
  - HYPONATRAEMIA [None]
  - HYPOTENSION [None]
  - HYPOVOLAEMIA [None]
  - MOUTH ULCERATION [None]
  - MUCOSAL INFLAMMATION [None]
  - NAUSEA [None]
  - ODYNOPHAGIA [None]
  - OESOPHAGITIS ULCERATIVE [None]
  - PANCYTOPENIA [None]
  - RASH [None]
  - SKIN DISCOLOURATION [None]
  - STOMATITIS [None]
  - SWOLLEN TONGUE [None]
  - TONSILLAR ULCER [None]
  - VOMITING [None]
